FAERS Safety Report 7102571-3 (Version None)
Quarter: 2010Q4

REPORT INFORMATION
  Report Type: 
  Country: None (occurrence: None)
  Receive Date: 20101115
  Receipt Date: 20101108
  Transmission Date: 20110411
  Serious: Yes (Hospitalization)
  Sender: FDA-Public Use
  Company Number: A0772898A

PATIENT
  Age: 60 Year
  Sex: Male
  Weight: 139.1 kg

DRUGS (5)
  1. AVANDIA [Suspect]
     Dosage: 8MG PER DAY
     Route: 048
     Dates: start: 20041118, end: 20070502
  2. VYTORIN [Concomitant]
  3. TOPROL-XL [Concomitant]
  4. DIOVAN HCT [Concomitant]
  5. GLUCOTROL [Concomitant]

REACTIONS (1)
  - MYOCARDIAL INFARCTION [None]
